FAERS Safety Report 16175651 (Version 1)
Quarter: 2019Q2

REPORT INFORMATION
  Report Type: Spontaneous
  Country: FR (occurrence: FR)
  Receive Date: 20190409
  Receipt Date: 20190409
  Transmission Date: 20190711
  Serious: Yes (Hospitalization)
  Sender: FDA-Public Use
  Company Number: FR-TEVA-2019-FR-1034614

PATIENT
  Age: 75 Year
  Sex: Female

DRUGS (2)
  1. ZOLPIDEM [Suspect]
     Active Substance: ZOLPIDEM\ZOLPIDEM TARTRATE
     Indication: TOXICITY TO VARIOUS AGENTS
     Route: 048
     Dates: start: 20121105, end: 20121105
  2. NOZINAN 25 MG, COMPRIM? PELLICUL? S?CABLE [Suspect]
     Active Substance: LEVOMEPROMAZINE MALEATE
     Indication: TOXICITY TO VARIOUS AGENTS
     Route: 048
     Dates: start: 20121105, end: 20121105

REACTIONS (3)
  - Depressed level of consciousness [Recovered/Resolved]
  - Hypothermia [Recovered/Resolved]
  - Bradycardia [Recovered/Resolved]

NARRATIVE: CASE EVENT DATE: 20121105
